FAERS Safety Report 8379028-5 (Version None)
Quarter: 2012Q2

REPORT INFORMATION
  Report Type: 
  Country: None (occurrence: None)
  Receive Date: 20120522
  Receipt Date: 20120522
  Transmission Date: 20120825
  Serious: No
  Sender: FDA-Public Use
  Company Number: None

PATIENT
  Sex: Male

DRUGS (6)
  1. PEGASYS [Suspect]
     Indication: HEPATITIS C
     Dosage: 180MCG EACH WEEK SQ
     Route: 058
     Dates: start: 20120307, end: 20120521
  2. INCIVEK 375 MG TABLETS [Concomitant]
  3. BUPROPION HYDROCHLORIDE (WELLBUTRIN XL) [Concomitant]
  4. RIBAVIRIN [Suspect]
     Dosage: 600MG BID PO
     Route: 048
     Dates: start: 20120307, end: 20120521
  5. ALPRAZOLAM [Concomitant]
  6. FLURAZEPAM 15,G [Concomitant]

REACTIONS (2)
  - RASH GENERALISED [None]
  - RASH PRURITIC [None]
